FAERS Safety Report 5924856-6 (Version None)
Quarter: 2008Q4

REPORT INFORMATION
  Report Type: 
  Country: None (occurrence: None)
  Receive Date: 20081017
  Receipt Date: 20081017
  Transmission Date: 20090506
  Serious: No
  Sender: FDA-Public Use
  Company Number: None

PATIENT
  Age: 7 Year
  Sex: Male
  Weight: 26.3086 kg

DRUGS (1)
  1. SINGULAIR [Suspect]
     Indication: MULTIPLE ALLERGIES
     Dosage: 5MG 1 A DAY OTHER
     Route: 050
     Dates: start: 20080924, end: 20081015

REACTIONS (7)
  - AGGRESSION [None]
  - FATIGUE [None]
  - MIDDLE INSOMNIA [None]
  - NIGHTMARE [None]
  - PRURITUS [None]
  - PSYCHOMOTOR HYPERACTIVITY [None]
  - URTICARIA [None]
